FAERS Safety Report 11223206 (Version 1)
Quarter: 2015Q2

REPORT INFORMATION
  Report Type: Report from Study
  Country: DE (occurrence: DE)
  Receive Date: 20150626
  Receipt Date: 20150626
  Transmission Date: 20150821
  Serious: Yes (Other)
  Sender: FDA-Public Use
  Company Number: DE-GILEAD-2015-0133121

PATIENT
  Age: 61 Year
  Sex: Female
  Weight: 66 kg

DRUGS (6)
  1. CORANGIN NITRO [Concomitant]
  2. DACLATASVIR [Suspect]
     Active Substance: DACLATASVIR
     Indication: HEPATITIS C
     Dosage: 60 MG, QD
     Route: 048
     Dates: start: 20140918, end: 20150306
  3. ASPIRIN. [Concomitant]
     Active Substance: ASPIRIN
  4. SPIRONOLACTON [Concomitant]
     Active Substance: SPIRONOLACTONE
  5. METOPROLOL [Concomitant]
     Active Substance: METOPROLOL
  6. SOFOSBUVIR [Suspect]
     Active Substance: SOFOSBUVIR
     Indication: HEPATITIS C
     Dosage: 400 MG, QD
     Route: 048
     Dates: start: 20140918, end: 20150306

REACTIONS (3)
  - Constipation [Unknown]
  - Menstrual disorder [Recovered/Resolved]
  - Intestinal obstruction [Recovered/Resolved]

NARRATIVE: CASE EVENT DATE: 20141215
